FAERS Safety Report 25540218 (Version 1)
Quarter: 2025Q3

REPORT INFORMATION
  Report Type: Spontaneous
  Country: US (occurrence: US)
  Receive Date: 20250710
  Receipt Date: 20250710
  Transmission Date: 20251020
  Serious: Yes (Other)
  Sender: BRISTOL-MYERS SQUIBB COMPANY
  Company Number: US-BRISTOL-MYERS SQUIBB COMPANY-2025-097251

PATIENT
  Age: 92 Year
  Sex: Female

DRUGS (1)
  1. POMALYST [Suspect]
     Active Substance: POMALIDOMIDE
     Indication: Anaemia
     Dosage: TAKE 1 WHOLE CAP BY MOUTH WITH WATER AT SAME TIME DAILY W/O FOOD FOR 14 DAYS ON, 14 DAYS OFF DONT BR
     Route: 048

REACTIONS (1)
  - Kidney infection [Recovered/Resolved]
